FAERS Safety Report 25099888 (Version 2)
Quarter: 2025Q2

REPORT INFORMATION
  Report Type: Spontaneous
  Country: PT (occurrence: PT)
  Receive Date: 20250320
  Receipt Date: 20250402
  Transmission Date: 20250717
  Serious: Yes (Other)
  Sender: TEVA
  Company Number: PT-TEVA-VS-3310004

PATIENT
  Age: 51 Year
  Sex: Male

DRUGS (5)
  1. PREGABALIN [Interacting]
     Active Substance: PREGABALIN
     Indication: Pain
     Route: 065
  2. SENNA LEAF [Concomitant]
     Active Substance: SENNA LEAF
     Indication: Laxative supportive care
     Route: 065
  3. FENTANYL [Interacting]
     Active Substance: FENTANYL
     Indication: Anxiety
     Dosage: EVERY 72 HOURS
     Route: 062
  4. CLONAZEPAM [Concomitant]
     Active Substance: CLONAZEPAM
     Indication: Insomnia
     Route: 065
  5. MORPHINE [Concomitant]
     Active Substance: MORPHINE
     Indication: Pain
     Dosage: DOSAGE: 200 MG/ML
     Route: 048

REACTIONS (2)
  - Face oedema [Recovered/Resolved]
  - Drug interaction [Unknown]
